FAERS Safety Report 18131648 (Version 1)
Quarter: 2020Q3

REPORT INFORMATION
  Report Type: Spontaneous
  Country: ES (occurrence: ES)
  Receive Date: 20200810
  Receipt Date: 20200810
  Transmission Date: 20201103
  Serious: Yes (Other)
  Sender: FDA-Public Use
  Company Number: ES-US-PROVELL PHARMACEUTICALS LLC-E2B_90079295

PATIENT
  Age: 76 Year
  Sex: Female

DRUGS (1)
  1. EUTIROX [Suspect]
     Active Substance: LEVOTHYROXINE SODIUM
     Indication: AUTOIMMUNE HYPOTHYROIDISM
     Route: 048
     Dates: start: 20200715

REACTIONS (2)
  - Dyspepsia [Unknown]
  - Dizziness [Unknown]

NARRATIVE: CASE EVENT DATE: 20200716
